FAERS Safety Report 5444673-3 (Version None)
Quarter: 2007Q3

REPORT INFORMATION
  Report Type: 
  Country: None (occurrence: None)
  Receive Date: 20070906
  Receipt Date: 20070124
  Transmission Date: 20080115
  Serious: No
  Sender: FDA-Public Use
  Company Number: A0636887A

PATIENT
  Age: 21 Year
  Sex: Male

DRUGS (3)
  1. REQUIP [Suspect]
     Indication: RESTLESS LEGS SYNDROME
     Route: 048
     Dates: start: 20060801
  2. ALLEGRA [Concomitant]
  3. FLONASE [Concomitant]

REACTIONS (2)
  - GAMBLING [None]
  - WEIGHT INCREASED [None]
